FAERS Safety Report 4787730-7 (Version None)
Quarter: 2005Q3

REPORT INFORMATION
  Report Type: 
  Country: None (occurrence: None)
  Receive Date: 20050926
  Receipt Date: 20050727
  Transmission Date: 20060218
  Serious: Yes (Hospitalization)
  Sender: FDA-Public Use
  Company Number: 216430

PATIENT
  Age: 63 Year
  Sex: Female
  Weight: 107.5 kg

DRUGS (3)
  1. AVASTIN [Suspect]
     Indication: RENAL CELL CARCINOMA STAGE UNSPECIFIED
     Dosage: 534 MG, Q2W, INTRAVENOUS
     Route: 042
     Dates: start: 20050505
  2. XELODA [Concomitant]
  3. TAXOTERE [Concomitant]

REACTIONS (1)
  - HAEMOPTYSIS [None]
